FAERS Safety Report 18887052 (Version 2)
Quarter: 2021Q1

REPORT INFORMATION
  Report Type: Spontaneous
  Country: US (occurrence: US)
  Receive Date: 20210212
  Receipt Date: 20210319
  Transmission Date: 20210420
  Serious: No
  Sender: FDA-Public Use
  Company Number: US-TAKEDA-2021TUS007844

PATIENT
  Sex: Female
  Weight: 88.89 kg

DRUGS (6)
  1. HEPARIN [Concomitant]
     Active Substance: HEPARIN SODIUM
  2. ACETAMINOPHEN. [Concomitant]
     Active Substance: ACETAMINOPHEN
  3. NORMAL SALINE [Concomitant]
     Active Substance: SODIUM CHLORIDE
  4. EPINEPHRINE. [Concomitant]
     Active Substance: EPINEPHRINE
  5. GAMMAGARD LIQUID [Suspect]
     Active Substance: HUMAN IMMUNOGLOBULIN G
     Indication: STIFF PERSON SYNDROME
     Dosage: 35 GRAM, 1/WEEK
     Route: 042
     Dates: start: 20201229
  6. DIPHENHYDRAMINE. [Concomitant]
     Active Substance: DIPHENHYDRAMINE

REACTIONS (2)
  - Off label use [Unknown]
  - Headache [Unknown]
